FAERS Safety Report 7824277-5 (Version None)
Quarter: 2011Q4

REPORT INFORMATION
  Report Type: 
  Country: None (occurrence: None)
  Receive Date: 20111019
  Receipt Date: 20111013
  Transmission Date: 20120403
  Serious: Yes (Death)
  Sender: FDA-Public Use
  Company Number: IE-AMGEN-IRLSP2011053144

PATIENT
  Sex: Male

DRUGS (3)
  1. ARANESP [Suspect]
     Indication: RENAL FAILURE CHRONIC
     Dosage: 40 MUG, QWK
     Route: 058
     Dates: start: 20110613
  2. LANSOPRAZOLE [Concomitant]
  3. VALPROATE SODIUM [Concomitant]

REACTIONS (1)
  - DEATH [None]
